FAERS Safety Report 7194260-4 (Version None)
Quarter: 2010Q4

REPORT INFORMATION
  Report Type: 
  Country: None (occurrence: None)
  Receive Date: 20101223
  Receipt Date: 20101209
  Transmission Date: 20110411
  Serious: Yes (Hospitalization, Other)
  Sender: FDA-Public Use
  Company Number: PHEH2007US04455

PATIENT
  Sex: Female
  Weight: 86.621 kg

DRUGS (14)
  1. ZOMETA [Suspect]
     Indication: BREAST CANCER
     Dosage: UNK
  2. ANTIBIOTICS [Suspect]
  3. SYNTHROID [Concomitant]
     Dosage: 100 MCG
  4. CELEBREX [Concomitant]
     Dosage: 200 MG, UNK
  5. NEXIUM [Concomitant]
     Dosage: 40 MG, UNK
  6. ASPIRIN [Concomitant]
     Dosage: 81 MG, UNK
  7. EFFEXOR XR [Concomitant]
     Dosage: 75 MG, UNK
  8. ATENOLOL [Concomitant]
     Dosage: 50 MG, UNK
  9. LIPITOR [Concomitant]
     Dosage: 20 MG, UNK
  10. AMITRIPTYLINE HCL [Concomitant]
     Dosage: 25 MG, UNK
  11. TYLENOL PM [Concomitant]
  12. VICODIN [Concomitant]
     Dosage: UNK, PRN
  13. PERCOCET [Concomitant]
     Dosage: 5/325 MG, PRN
  14. TAXOTERE [Concomitant]

REACTIONS (59)
  - ABSCESS [None]
  - ANAEMIA [None]
  - ANXIETY [None]
  - ARTHRALGIA [None]
  - BACK PAIN [None]
  - BONE DEBRIDEMENT [None]
  - BONE DISORDER [None]
  - BRONCHITIS [None]
  - CATARACT [None]
  - CELLULITIS [None]
  - CENTRAL VENOUS CATHETERISATION [None]
  - CHOLELITHIASIS [None]
  - COLITIS [None]
  - COMPRESSION FRACTURE [None]
  - CONJUNCTIVITIS [None]
  - DECREASED APPETITE [None]
  - DEFORMITY [None]
  - DEHYDRATION [None]
  - DIARRHOEA [None]
  - DIPLOPIA [None]
  - EATING DISORDER [None]
  - EMOTIONAL DISTRESS [None]
  - ENTHESOPATHY [None]
  - GASTROOESOPHAGEAL REFLUX DISEASE [None]
  - GENERAL PHYSICAL HEALTH DETERIORATION [None]
  - HYPOKALAEMIA [None]
  - HYPOPHAGIA [None]
  - IMPAIRED HEALING [None]
  - INFECTION [None]
  - IRON DEFICIENCY ANAEMIA [None]
  - JAW DISORDER [None]
  - JOINT EFFUSION [None]
  - KYPHOSIS [None]
  - LYMPH GLAND INFECTION [None]
  - MASS [None]
  - OESOPHAGEAL DISORDER [None]
  - ORAL PAIN [None]
  - OSTEOARTHRITIS [None]
  - OSTEOMALACIA [None]
  - OSTEOMYELITIS [None]
  - OSTEONECROSIS OF JAW [None]
  - OSTEOPOROSIS [None]
  - OVARIAN MASS [None]
  - PAIN [None]
  - PAIN IN EXTREMITY [None]
  - PANCYTOPENIA [None]
  - PARAESTHESIA ORAL [None]
  - PERONEAL NERVE PALSY [None]
  - PYREXIA [None]
  - SCIATICA [None]
  - SEPSIS [None]
  - SPINAL FRACTURE [None]
  - SPINAL OSTEOARTHRITIS [None]
  - SWELLING FACE [None]
  - SYNOVITIS [None]
  - TINEA PEDIS [None]
  - TOOTH EXTRACTION [None]
  - TOOTH FRACTURE [None]
  - WEIGHT DECREASED [None]
